FAERS Safety Report 13711632 (Version 5)
Quarter: 2018Q2

REPORT INFORMATION
  Report Type: Report from Study
  Country: US (occurrence: US)
  Receive Date: 20170703
  Receipt Date: 20180516
  Transmission Date: 20180711
  Serious: No
  Sender: FDA-Public Use
  Company Number: PHEH2017US020288

PATIENT
  Sex: Female
  Weight: 97.5 kg

DRUGS (1)
  1. COSENTYX [Suspect]
     Active Substance: SECUKINUMAB
     Indication: PSORIASIS
     Dosage: 300 MG, QMO
     Route: 058

REACTIONS (6)
  - Malaise [Unknown]
  - Stress [Unknown]
  - Cough [Unknown]
  - Sinusitis [Unknown]
  - Dizziness [Unknown]
  - Psoriasis [Unknown]
